FAERS Safety Report 18722605 (Version 4)
Quarter: 2021Q1

REPORT INFORMATION
  Report Type: Report from Study
  Country: DE (occurrence: DE)
  Receive Date: 20210111
  Receipt Date: 20210324
  Transmission Date: 20210419
  Serious: Yes (Life-Threatening, Hospitalization, Other)
  Sender: FDA-Public Use
  Company Number: DE-BRISTOL-MYERS SQUIBB COMPANY-BMS-2020-110197

PATIENT
  Age: 70 Year
  Sex: Male
  Weight: 68 kg

DRUGS (5)
  1. CANDESARTAN COMP. [Concomitant]
     Active Substance: CANDESARTAN CILEXETIL\HYDROCHLOROTHIAZIDE
     Indication: HYPERTENSION
     Dosage: 16/12.5 MG
     Route: 065
     Dates: start: 2000, end: 20210112
  2. NIVOLUMAB [Suspect]
     Active Substance: NIVOLUMAB
     Indication: MALIGNANT NEOPLASM OF UNKNOWN PRIMARY SITE
     Dosage: 240 MILLIGRAM, QD
     Route: 042
     Dates: start: 20201014, end: 20201223
  3. CARBIMAZOL [Concomitant]
     Active Substance: CARBIMAZOLE
     Indication: HYPERTHYROIDISM
     Dosage: 20 MILLIGRAM
     Route: 065
     Dates: start: 20201221, end: 20210112
  4. DECORTIN [Concomitant]
     Active Substance: PREDNISONE
     Indication: COLITIS
     Dosage: 30 MILLIGRAM
     Route: 065
     Dates: start: 20210108, end: 20210112
  5. IPILIMUMAB [Suspect]
     Active Substance: IPILIMUMAB
     Indication: MALIGNANT NEOPLASM OF UNKNOWN PRIMARY SITE
     Dosage: 76 MILLIGRAM, QD
     Route: 042
     Dates: start: 20201014, end: 20201223

REACTIONS (5)
  - Pyrexia [Recovered/Resolved]
  - Infection [Recovered/Resolved]
  - Immune-mediated enterocolitis [Recovered/Resolved]
  - Haemorrhoidal haemorrhage [Recovered/Resolved]
  - Diarrhoea [Recovered/Resolved]

NARRATIVE: CASE EVENT DATE: 20201220
